FAERS Safety Report 4342945-7 (Version None)
Quarter: 2004Q1

REPORT INFORMATION
  Report Type: 
  Country: None (occurrence: None)
  Receive Date: 20040325
  Receipt Date: 20040210
  Transmission Date: 20041129
  Serious: No
  Sender: FDA-Public Use
  Company Number: USA030228526

PATIENT
  Age: 53 Year
  Sex: Female

DRUGS (1)
  1. FORTEO (ATORVASTATIN) [Suspect]
     Indication: OSTEOPOROSIS
     Dates: start: 20030209

REACTIONS (6)
  - ARTHRALGIA [None]
  - INJECTION SITE RASH [None]
  - INJECTION SITE URTICARIA [None]
  - JOINT STIFFNESS [None]
  - MUSCULOSKELETAL STIFFNESS [None]
  - PAIN [None]
